FAERS Safety Report 15857954 (Version 1)
Quarter: 2019Q1

REPORT INFORMATION
  Report Type: Spontaneous
  Country: ES (occurrence: ES)
  Receive Date: 20190123
  Receipt Date: 20190123
  Transmission Date: 20190417
  Serious: Yes (Other)
  Sender: FDA-Public Use
  Company Number: ES-B.I. PHARMACEUTICALS,INC./RIDGEFIELD-2019-12-000253

PATIENT
  Age: 60 Year
  Sex: Male
  Weight: 77 kg

DRUGS (14)
  1. VENTOLIN [Concomitant]
     Active Substance: ALBUTEROL SULFATE
     Indication: PRODUCT USED FOR UNKNOWN INDICATION
     Dosage: 100MCG/INHALATION SUSPENSION FOR INHALATION IN PRESSURIZED CONTAINER, 1 INHALER OF 200 DOSES
     Route: 055
     Dates: start: 20161222
  2. NASONEX [Concomitant]
     Active Substance: MOMETASONE FUROATE
     Indication: PRODUCT USED FOR UNKNOWN INDICATION
     Dosage: FORMULATION: SUSPENSION FOR NASAL SPRAY, 1 SPRAY CONTAINER OF 140 DOSES
     Route: 055
     Dates: start: 20160429
  3. GASTRODENOL [Suspect]
     Active Substance: BISMUTH SUBCITRATE
     Indication: PRODUCT USED FOR UNKNOWN INDICATION
     Route: 048
     Dates: start: 20181217, end: 20190109
  4. OMEPRAZOL APOTEX [Concomitant]
     Indication: PRODUCT USED FOR UNKNOWN INDICATION
     Dosage: FORM: GASTRO-RESISTANT HARD CAPSULES GENERIC PHARMACEUTICAL PRODUCT, 28 CAPSULES (AL/AL BLISTER)
     Route: 048
     Dates: start: 20160429
  5. MICARDISPLUS [Suspect]
     Active Substance: HYDROCHLOROTHIAZIDE\TELMISARTAN
     Indication: PRODUCT USED FOR UNKNOWN INDICATION
     Dosage: FORM STRENGTH: 40MG/12.5MG
     Route: 048
     Dates: start: 20181217
  6. ALIPZA [Concomitant]
     Active Substance: PITAVASTATIN
     Indication: PRODUCT USED FOR UNKNOWN INDICATION
     Route: 048
     Dates: start: 20181108
  7. MONTELUKAST APOTEX [Concomitant]
     Indication: PRODUCT USED FOR UNKNOWN INDICATION
     Dosage: GENERIC PHARMACEUTICAL PRODUCT, 30 TABLETS
     Route: 048
     Dates: start: 20130207
  8. METRONIDAZOL NORMON [Suspect]
     Active Substance: METRONIDAZOLE
     Indication: HELICOBACTER INFECTION
     Route: 048
     Dates: start: 20181217, end: 20181224
  9. TRYPTIZOL [Concomitant]
     Active Substance: AMITRIPTYLINE HYDROCHLORIDE
     Indication: PRODUCT USED FOR UNKNOWN INDICATION
     Route: 048
     Dates: start: 20181108
  10. SILODYX [Concomitant]
     Active Substance: SILODOSIN
     Indication: PRODUCT USED FOR UNKNOWN INDICATION
     Route: 048
     Dates: start: 20180611
  11. TAMSULOSINA TEVA [Concomitant]
     Active Substance: TAMSULOSIN HYDROCHLORIDE
     Indication: PRODUCT USED FOR UNKNOWN INDICATION
     Dosage: GENERIC PHARMACEUTICAL PRODUCT, 30 TABLETS
     Route: 048
     Dates: start: 20181003
  12. IBIS [Concomitant]
     Indication: PRODUCT USED FOR UNKNOWN INDICATION
     Route: 048
     Dates: start: 20140130
  13. AMOXICILINA NORMON [Suspect]
     Active Substance: AMOXICILLIN
     Indication: HELICOBACTER INFECTION
     Route: 048
     Dates: start: 20181217, end: 20181224
  14. SERETIDE [Concomitant]
     Active Substance: FLUTICASONE PROPIONATE\SALMETEROL XINAFOATE
     Indication: PRODUCT USED FOR UNKNOWN INDICATION
     Dosage: FORM STRENGTH: 50MCG/500MCG/INHALATION, INHALATION POWDER, 1 INHALER + 60 BLISTERS
     Route: 055
     Dates: start: 20110217

REACTIONS (2)
  - Abnormal faeces [Recovered/Resolved]
  - Occult blood [Recovered/Resolved]

NARRATIVE: CASE EVENT DATE: 20181217
